FAERS Safety Report 5009820-6 (Version None)
Quarter: 2006Q2

REPORT INFORMATION
  Report Type: 
  Country: None (occurrence: None)
  Receive Date: 20060522
  Receipt Date: 20060522
  Transmission Date: 20061013
  Serious: Yes (Life-Threatening, Hospitalization)
  Sender: FDA-Public Use
  Company Number: None

PATIENT
  Age: 74 Year
  Sex: Male
  Weight: 48.9885 kg

DRUGS (2)
  1. CEFAZOLIN [Suspect]
     Indication: PROPHYLAXIS
     Dosage: 1 G ONCE IV BOLUS
     Route: 040
     Dates: start: 20060424, end: 20060424
  2. CEFAZOLIN [Suspect]
     Indication: SURGERY
     Dosage: 1 G ONCE IV BOLUS
     Route: 040
     Dates: start: 20060424, end: 20060424

REACTIONS (4)
  - BRONCHOSPASM [None]
  - HYPOTENSION [None]
  - POST PROCEDURAL COMPLICATION [None]
  - PROCEDURAL COMPLICATION [None]
